FAERS Safety Report 10073962 (Version 1)
Quarter: 2014Q2

REPORT INFORMATION
  Report Type: Spontaneous
  Country: US (occurrence: US)
  Receive Date: 20140411
  Receipt Date: 20140411
  Transmission Date: 20141212
  Serious: Yes (Death)
  Sender: FDA-Public Use
  Company Number: US-LUNDBECK-DKLU1099169

PATIENT
  Age: 9 Year
  Sex: Male

DRUGS (9)
  1. SABRIL     (TABLET) [Suspect]
     Indication: EPILEPSY
     Route: 048
  2. SABRIL     (TABLET) [Suspect]
     Route: 048
  3. SABRIL     (TABLET) [Suspect]
     Route: 048
  4. SABRIL     (TABLET) [Suspect]
     Route: 048
  5. PULMICORT [Concomitant]
     Indication: PRODUCT USED FOR UNKNOWN INDICATION
  6. ATROVENT HFA [Concomitant]
     Indication: PRODUCT USED FOR UNKNOWN INDICATION
  7. ALBUTEROL [Concomitant]
     Indication: PRODUCT USED FOR UNKNOWN INDICATION
  8. DEPAKENE [Concomitant]
     Indication: PRODUCT USED FOR UNKNOWN INDICATION
  9. CLONAZEPAM [Concomitant]
     Indication: PRODUCT USED FOR UNKNOWN INDICATION

REACTIONS (1)
  - Death [Fatal]
